FAERS Safety Report 15867862 (Version 2)
Quarter: 2019Q1

REPORT INFORMATION
  Report Type: Spontaneous
  Country: GB (occurrence: GB)
  Receive Date: 20190125
  Receipt Date: 20190125
  Transmission Date: 20190417
  Serious: Yes (Death)
  Sender: FDA-Public Use
  Company Number: GB-PFIZER INC-2019032478

PATIENT
  Age: 44 Year
  Sex: Male

DRUGS (6)
  1. TRAMADOL. [Suspect]
     Active Substance: TRAMADOL
  2. HEROIN [Suspect]
     Active Substance: DIAMORPHINE
     Dosage: UNK
  3. ALCOHOL. [Suspect]
     Active Substance: ALCOHOL
     Dosage: 90MG PER 100ML OF BLOOD
  4. PREGABALIN. [Suspect]
     Active Substance: PREGABALIN
  5. ZOPICLONE [Suspect]
     Active Substance: ZOPICLONE
  6. COCAINE [Suspect]
     Active Substance: COCAINE

REACTIONS (4)
  - Cardiac arrest [Fatal]
  - Consciousness fluctuating [Unknown]
  - Toxicity to various agents [Fatal]
  - Substance abuse [Fatal]
